FAERS Safety Report 5398749-X (Version None)
Quarter: 2007Q3

REPORT INFORMATION
  Report Type: 
  Country: None (occurrence: None)
  Receive Date: 20070726
  Receipt Date: 20070502
  Transmission Date: 20080115
  Serious: No
  Sender: FDA-Public Use
  Company Number: US-AMGEN-KDL217588

PATIENT
  Sex: Male
  Weight: 99.9 kg

DRUGS (12)
  1. EPOGEN [Suspect]
     Indication: ANAEMIA OF MALIGNANT DISEASE
     Route: 058
     Dates: start: 20070201
  2. HYDROCHLOROTHIAZIDE [Concomitant]
  3. ENALAPRIL MALEATE [Concomitant]
  4. ATENOLOL [Concomitant]
  5. FOLIC ACID [Concomitant]
  6. PROTONIX [Concomitant]
  7. VITAMIN CAP [Concomitant]
  8. ASCORBIC ACID [Concomitant]
  9. VITAMIN B [Concomitant]
  10. AMITRIPTYLINE HCL [Concomitant]
  11. TYLENOL (CAPLET) [Concomitant]
  12. NORTRIPTYLINE HCL [Concomitant]

REACTIONS (4)
  - ARTHRALGIA [None]
  - BONE PAIN [None]
  - MYALGIA [None]
  - PAIN IN EXTREMITY [None]
